FAERS Safety Report 4756914-6 (Version None)
Quarter: 2005Q3

REPORT INFORMATION
  Report Type: 
  Country: None (occurrence: None)
  Receive Date: 20050830
  Receipt Date: 20050825
  Transmission Date: 20060218
  Serious: Yes (Hospitalization)
  Sender: FDA-Public Use
  Company Number: 2005UW12621

PATIENT
  Age: 61 Year
  Sex: Female
  Weight: 68 kg

DRUGS (2)
  1. CRESTOR [Suspect]
     Indication: BLOOD CHOLESTEROL INCREASED
     Route: 048
  2. INDERAL [Concomitant]
     Indication: TREMOR

REACTIONS (3)
  - ABDOMINAL PAIN [None]
  - PANCREATIC DISORDER [None]
  - PANCREATIC ENZYMES INCREASED [None]
